APPROVED DRUG PRODUCT: NORTRIPTYLINE HYDROCHLORIDE
Active Ingredient: NORTRIPTYLINE HYDROCHLORIDE
Strength: EQ 10MG BASE/5ML
Dosage Form/Route: SOLUTION;ORAL
Application: A217731 | Product #001 | TE Code: AA
Applicant: RUBICON RESEARCH LTD
Approved: Aug 15, 2023 | RLD: No | RS: No | Type: RX